FAERS Safety Report 7961663-7 (Version None)
Quarter: 2011Q4

REPORT INFORMATION
  Report Type: 
  Country: None (occurrence: None)
  Receive Date: 20111207
  Receipt Date: 20111128
  Transmission Date: 20120403
  Serious: Yes (Hospitalization)
  Sender: FDA-Public Use
  Company Number: US-CEPHALON-2011006009

PATIENT
  Sex: Male
  Weight: 75 kg

DRUGS (3)
  1. FENTORA [Suspect]
     Indication: PANCREATITIS CHRONIC
     Route: 002
     Dates: start: 20090101
  2. MORPHINE [Concomitant]
  3. NOVOLOG [Concomitant]
     Dates: start: 20110101

REACTIONS (1)
  - PANCREATITIS [None]
